FAERS Safety Report 5282970-5 (Version None)
Quarter: 2007Q1

REPORT INFORMATION
  Report Type: 
  Country: None (occurrence: None)
  Receive Date: 20070328
  Receipt Date: 20070328
  Transmission Date: 20070707
  Serious: Yes (Other)
  Sender: FDA-Public Use
  Company Number: None

PATIENT
  Age: 63 Year
  Sex: Male
  Weight: 106.1 kg

DRUGS (2)
  1. HYDROXYZINE [Suspect]
  2. COUMADIN [Concomitant]

REACTIONS (2)
  - NAUSEA [None]
  - VOMITING [None]
